FAERS Safety Report 4987350-5 (Version None)
Quarter: 2006Q2

REPORT INFORMATION
  Report Type: 
  Country: None (occurrence: None)
  Receive Date: 20060428
  Receipt Date: 20060428
  Transmission Date: 20061013
  Serious: Yes (Hospitalization)
  Sender: FDA-Public Use
  Company Number: None

PATIENT
  Sex: Female
  Weight: 93.8946 kg

DRUGS (3)
  1. PEGASYS [Suspect]
     Indication: HEPATITIS C VIRUS
     Dosage: 180 MG SQ WK
     Route: 058
     Dates: start: 20050811, end: 20060327
  2. COPEGUS [Suspect]
     Indication: HEPATITIS C VIRUS
     Dosage: 600 MG Q AM AND Q PM
     Dates: start: 20050811, end: 20060327
  3. PROCRIT [Concomitant]

REACTIONS (2)
  - HEPATIC ENCEPHALOPATHY [None]
  - PNEUMONIA STREPTOCOCCAL [None]
